FAERS Safety Report 11647836 (Version 1)
Quarter: 2015Q4

REPORT INFORMATION
  Report Type: Report from Study
  Country: US (occurrence: US)
  Receive Date: 20151021
  Receipt Date: 20151021
  Transmission Date: 20160304
  Serious: Yes (Hospitalization)
  Sender: FDA-Public Use
  Company Number: US-GILEAD-2015-0162609

PATIENT
  Age: 19 Year
  Sex: Female

DRUGS (9)
  1. COUMADIN [Concomitant]
     Active Substance: WARFARIN SODIUM
  2. AMBRISENTAN [Suspect]
     Active Substance: AMBRISENTAN
     Indication: PULMONARY ARTERIAL HYPERTENSION
     Dosage: 5 MG, UNK
     Route: 065
     Dates: start: 20090210
  3. ADCIRCA [Concomitant]
     Active Substance: TADALAFIL
  4. REMODULIN [Suspect]
     Active Substance: TREPROSTINIL
     Indication: PULMONARY ARTERIAL HYPERTENSION
     Dosage: .088 UG/KG, UNK
     Route: 041
     Dates: start: 20130313
  5. REMODULIN [Suspect]
     Active Substance: TREPROSTINIL
     Dosage: .068 UG/KG, UNK
     Route: 041
  6. REMODULIN [Suspect]
     Active Substance: TREPROSTINIL
     Dosage: UNK
     Route: 058
  7. XARELTO [Concomitant]
     Active Substance: RIVAROXABAN
  8. REVATIO [Concomitant]
     Active Substance: SILDENAFIL CITRATE
  9. AMBRISENTAN [Suspect]
     Active Substance: AMBRISENTAN
     Dosage: 10 MG, QD
     Route: 065

REACTIONS (7)
  - Injection site oedema [Unknown]
  - Rhinovirus infection [Unknown]
  - Device dislocation [Recovered/Resolved]
  - Drug dose omission [Recovered/Resolved]
  - Injection site erythema [Unknown]
  - Pyrexia [Unknown]
  - Gastroenteritis viral [Unknown]

NARRATIVE: CASE EVENT DATE: 20150705
